FAERS Safety Report 4768262-9 (Version None)
Quarter: 2005Q3

REPORT INFORMATION
  Report Type: 
  Country: None (occurrence: None)
  Receive Date: 20050913
  Receipt Date: 20050901
  Transmission Date: 20060218
  Serious: Yes (Congenital Anomaly)
  Sender: FDA-Public Use
  Company Number: GXKR2005US01526

PATIENT
  Sex: 0

DRUGS (2)
  1. LOVASTATIN [Suspect]
     Dosage: 10  MG, QD, INTRA-UTERINE
     Route: 015
  2. DEXTROAMPHETAMINE (DEXAMFETAMINE) [Concomitant]

REACTIONS (18)
  - ANAL ATRESIA [None]
  - ANOMALY OF EXTERNAL EAR CONGENITAL [None]
  - APLASIA [None]
  - CONGENITAL JOINT MALFORMATION [None]
  - CONTRAINDICATION TO MEDICAL TREATMENT [None]
  - DRUG EXPOSURE DURING PREGNANCY [None]
  - EYELID PTOSIS [None]
  - HAND DEFORMITY [None]
  - HEMIHYPERTROPHY [None]
  - HIGH ARCHED PALATE [None]
  - MULTIPLE CONGENITAL ABNORMALITIES [None]
  - OESOPHAGEAL STENOSIS [None]
  - RENAL DYSPLASIA [None]
  - RIB DEFORMITY [None]
  - SCOLIOSIS [None]
  - SKELETON DYSPLASIA [None]
  - SPINE MALFORMATION [None]
  - TORTICOLLIS [None]
